FAERS Safety Report 24641296 (Version 4)
Quarter: 2025Q1

REPORT INFORMATION
  Report Type: Spontaneous
  Country: US (occurrence: US)
  Receive Date: 20241120
  Receipt Date: 20250329
  Transmission Date: 20250408
  Serious: No
  Sender: ABBVIE
  Company Number: US-ABBVIE-6010269

PATIENT
  Age: 28 Year
  Sex: Female

DRUGS (1)
  1. LILETTA [Suspect]
     Active Substance: LEVONORGESTREL
     Indication: Product used for unknown indication
     Route: 015
     Dates: start: 20241016, end: 20241113

REACTIONS (1)
  - Device dislocation [Recovered/Resolved]

NARRATIVE: CASE EVENT DATE: 20241113
